FAERS Safety Report 14962798 (Version 1)
Quarter: 2018Q2

REPORT INFORMATION
  Report Type: Spontaneous
  Country: HU (occurrence: HU)
  Receive Date: 20180601
  Receipt Date: 20180601
  Transmission Date: 20180711
  Serious: Yes (Other)
  Sender: FDA-Public Use
  Company Number: HU-NOVOPROD-602035

PATIENT
  Age: 40 Year
  Sex: Female

DRUGS (2)
  1. MIRENA [Concomitant]
     Active Substance: LEVONORGESTREL
     Indication: ENDOMETRIAL HYPERPLASIA
     Dosage: 20 ?G, QD, 1.5 YEARS
     Route: 015
     Dates: end: 20171206
  2. TRISEQUENS [Suspect]
     Active Substance: ESTRADIOL\NORETHINDRONE ACETATE
     Indication: PREMATURE MENOPAUSE
     Dosage: 2MG ESTRADIOL FOR 12 DAYS FOLLOWED BY 2MG ESTRADIOL + 1MG NORETHISTERONE FOR 10 DAYS FOLLOWED BY 1M
     Route: 048
     Dates: start: 20171001, end: 20171201

REACTIONS (4)
  - Hypertensive crisis [Recovered/Resolved]
  - Blood pressure increased [Recovered/Resolved]
  - Palpitations [Recovered/Resolved]
  - Headache [Recovered/Resolved]

NARRATIVE: CASE EVENT DATE: 2017
